FAERS Safety Report 7053167-3 (Version None)
Quarter: 2010Q4

REPORT INFORMATION
  Report Type: 
  Country: None (occurrence: None)
  Receive Date: 20101020
  Receipt Date: 20101014
  Transmission Date: 20110411
  Serious: No
  Sender: FDA-Public Use
  Company Number: US-B.I. PHARMACEUTICALS,INC./RIDGEFIELD-2010-BP-11656BP

PATIENT
  Sex: Female

DRUGS (2)
  1. ZANTAC 150 [Suspect]
     Indication: ULCER
     Dosage: 300 MG
     Route: 048
     Dates: start: 20100701
  2. IRON [Concomitant]
     Indication: HAEMOGLOBIN DECREASED
     Route: 048

REACTIONS (3)
  - ABDOMINAL DISTENSION [None]
  - FLATULENCE [None]
  - FREQUENT BOWEL MOVEMENTS [None]
